FAERS Safety Report 19481911 (Version 1)
Quarter: 2021Q2

REPORT INFORMATION
  Report Type: Spontaneous
  Country: US (occurrence: US)
  Receive Date: 20210630
  Receipt Date: 20210630
  Transmission Date: 20210717
  Serious: Yes (Hospitalization)
  Sender: FDA-Public Use
  Company Number: None

PATIENT
  Sex: Female

DRUGS (9)
  1. CLONAZEPAM. [Concomitant]
     Active Substance: CLONAZEPAM
     Dates: start: 20210614
  2. DESVENLAFAX [Concomitant]
     Dates: start: 20210422
  3. OXYCODONE [Concomitant]
     Active Substance: OXYCODONE
     Dates: start: 20210624
  4. TRAZODONE [Concomitant]
     Active Substance: TRAZODONE HYDROCHLORIDE
     Dates: start: 20210125
  5. DOCUSATE SOD [Concomitant]
     Dates: start: 20210624
  6. BUPROPN HCL [Concomitant]
     Active Substance: BUPROPION HYDROCHLORIDE
     Dates: start: 20210125
  7. NITROFURANTIN [Concomitant]
     Active Substance: NITROFURANTOIN
     Dates: start: 20210628
  8. GLATIRAMER SYRINGE [Suspect]
     Active Substance: GLATIRAMER
     Indication: MULTIPLE SCLEROSIS
     Dosage: OTHER FREQUENCY:3 WEEKS AT A TIME;?
     Route: 058
     Dates: start: 20190128
  9. LAMOTRIGINE. [Concomitant]
     Active Substance: LAMOTRIGINE
     Dates: start: 20210423

REACTIONS (3)
  - Intentional dose omission [None]
  - Fatigue [None]
  - Mobility decreased [None]
